FAERS Safety Report 13744192 (Version 2)
Quarter: 2017Q3

REPORT INFORMATION
  Report Type: Report from Study
  Country: GB (occurrence: GB)
  Receive Date: 20170712
  Receipt Date: 20170929
  Transmission Date: 20171127
  Serious: Yes (Hospitalization, Other)
  Sender: FDA-Public Use
  Company Number: GB-AMGEN-GBRSL2016071093

PATIENT
  Age: 53 Year
  Sex: Male

DRUGS (4)
  1. ARANESP [Suspect]
     Active Substance: DARBEPOETIN ALFA
     Dosage: 130 MUG, QWK
     Route: 065
  2. ARANESP [Suspect]
     Active Substance: DARBEPOETIN ALFA
     Indication: PRODUCT USED FOR UNKNOWN INDICATION
     Dosage: 80 MUG, UNK
     Route: 065
  3. ARANESP [Suspect]
     Active Substance: DARBEPOETIN ALFA
     Dosage: 100 MUG, UNK
     Route: 065
  4. ARANESP [Suspect]
     Active Substance: DARBEPOETIN ALFA
     Dosage: 30 MUG, UNK
     Route: 065

REACTIONS (4)
  - Heart valve replacement [Unknown]
  - Coronary artery bypass [Unknown]
  - Renal transplant failure [Unknown]
  - Mineral supplementation [Unknown]

NARRATIVE: CASE EVENT DATE: 201707
